FAERS Safety Report 6252239-0 (Version None)
Quarter: 2009Q2

REPORT INFORMATION
  Report Type: 
  Country: None (occurrence: None)
  Receive Date: 20090629
  Receipt Date: 20090617
  Transmission Date: 20091009
  Serious: Yes (Hospitalization)
  Sender: FDA-Public Use
  Company Number: 230294K09BRA

PATIENT
  Age: 73 Year
  Sex: Male

DRUGS (2)
  1. REBIF [Suspect]
     Indication: PRIMARY PROGRESSIVE MULTIPLE SCLEROSIS
     Dosage: 44 MCG, 3 IN 1 WEEKS
     Dates: start: 20040112, end: 20090101
  2. REBIF [Suspect]
     Indication: PRIMARY PROGRESSIVE MULTIPLE SCLEROSIS
     Dosage: 44 MCG, 3 IN 1 WEEKS
     Dates: start: 20090312

REACTIONS (6)
  - BACK PAIN [None]
  - BLOOD PRESSURE INCREASED [None]
  - HERPES ZOSTER [None]
  - INJECTION SITE ERYTHEMA [None]
  - MUSCULOSKELETAL PAIN [None]
  - PYREXIA [None]
